FAERS Safety Report 5352930-4 (Version None)
Quarter: 2007Q2

REPORT INFORMATION
  Report Type: 
  Country: None (occurrence: None)
  Receive Date: 20070611
  Receipt Date: 20070605
  Transmission Date: 20071010
  Serious: Yes (Congenital Anomaly)
  Sender: FDA-Public Use
  Company Number: UG-BOEHRINGER INGELHEIM PHARMACEUTICALS, INC.-2007-BP-06341BP

PATIENT
  Weight: 3 kg

DRUGS (6)
  1. VIRAMUNE [Suspect]
     Indication: HIV INFECTION
     Route: 015
     Dates: start: 20060112, end: 20060920
  2. VIRAMUNE [Suspect]
     Route: 015
     Dates: start: 20051222, end: 20060112
  3. COMBIVIR [Suspect]
     Indication: HIV INFECTION
     Route: 015
     Dates: start: 20051222, end: 20060920
  4. FOLATE SUPPLEMENT [Concomitant]
     Route: 015
  5. COTRIMOXEZOLE [Concomitant]
     Indication: ANTIFUNGAL PROPHYLAXIS
     Route: 015
  6. VITAMIN B [Concomitant]
     Route: 015

REACTIONS (1)
  - TALIPES [None]
